FAERS Safety Report 8551559-4 (Version None)
Quarter: 2012Q3

REPORT INFORMATION
  Report Type: 
  Country: None (occurrence: None)
  Receive Date: 20120730
  Receipt Date: 20120719
  Transmission Date: 20120928
  Serious: Yes (Hospitalization)
  Sender: FDA-Public Use
  Company Number: US-BAYER-2012-073459

PATIENT
  Age: 16 Year
  Sex: Female
  Weight: 75.45 kg

DRUGS (11)
  1. DROSPIRENONE AND ETHINYL ESTRADIOL [Suspect]
  2. YAZ [Suspect]
     Dosage: UNK
  3. YASMIN [Suspect]
     Indication: MENORRHAGIA
     Dosage: UNK
  4. PROMETHAZINE [Concomitant]
  5. SUMATRIPTAN [Concomitant]
  6. FLUOXETINE HCL [Concomitant]
     Dosage: 10 MG
  7. LAMOTRIGINE [Concomitant]
     Dosage: 100 MG
  8. NU-IRON [Concomitant]
  9. LORTAB [Concomitant]
  10. YASMIN [Suspect]
     Indication: METRORRHAGIA
  11. IBUPROFEN (ADVIL) [Concomitant]
     Indication: MIGRAINE

REACTIONS (2)
  - PULMONARY EMBOLISM [None]
  - DEEP VEIN THROMBOSIS [None]
